FAERS Safety Report 7717701-X (Version None)
Quarter: 2011Q3

REPORT INFORMATION
  Report Type: 
  Country: None (occurrence: None)
  Receive Date: 20110824
  Receipt Date: 20110808
  Transmission Date: 20111222
  Serious: No
  Sender: FDA-Public Use
  Company Number: TPA2011A04752

PATIENT
  Age: 66 Year
  Sex: Female
  Weight: 49.8957 kg

DRUGS (1)
  1. PREVPAC [Suspect]
     Indication: HELICOBACTER INFECTION
     Dosage: ONCE, ORAL
     Route: 048
     Dates: start: 20110803, end: 20110803

REACTIONS (10)
  - DIZZINESS [None]
  - CHEST PAIN [None]
  - VISION BLURRED [None]
  - PARAESTHESIA [None]
  - TREMOR [None]
  - DYSGEUSIA [None]
  - DYSPHAGIA [None]
  - HYPOAESTHESIA [None]
  - DIARRHOEA [None]
  - ABDOMINAL DISCOMFORT [None]
